FAERS Safety Report 5777832-0 (Version None)
Quarter: 2008Q2

REPORT INFORMATION
  Report Type: 
  Country: None (occurrence: None)
  Receive Date: 20080601
  Receipt Date: 20080206
  Transmission Date: 20081010
  Serious: No
  Sender: FDA-Public Use
  Company Number: US200801003015

PATIENT
  Age: 52 Year
  Sex: Male

DRUGS (5)
  1. BYETTA [Suspect]
     Indication: TYPE 2 DIABETES MELLITUS
     Dosage: 5 UG, 2/D, SUBCUTANEOUS : 10 UG, SUBCUTANEOUS
     Route: 058
     Dates: start: 20071101, end: 20071201
  2. BYETTA [Suspect]
     Indication: TYPE 2 DIABETES MELLITUS
     Dosage: 5 UG, 2/D, SUBCUTANEOUS : 10 UG, SUBCUTANEOUS
     Route: 058
     Dates: start: 20071201
  3. BYETTA [Suspect]
  4. GLYBURIDE [Concomitant]
  5. METFORMIN HCL [Concomitant]

REACTIONS (3)
  - BLOOD GLUCOSE DECREASED [None]
  - BLOOD GLUCOSE INCREASED [None]
  - FEELING ABNORMAL [None]
